FAERS Safety Report 6779016-6 (Version None)
Quarter: 2010Q2

REPORT INFORMATION
  Report Type: 
  Country: None (occurrence: None)
  Receive Date: 20100618
  Receipt Date: 20100609
  Transmission Date: 20101027
  Serious: Yes (Death)
  Sender: FDA-Public Use
  Company Number: AT-PFIZER INC-2010074081

PATIENT
  Age: 73 Year
  Sex: Male

DRUGS (8)
  1. ARGATROBAN [Suspect]
     Indication: HEPARIN-INDUCED THROMBOCYTOPENIA
     Dosage: 250 MG, (33.4 UG/KG/MIN)
     Route: 042
     Dates: start: 20100222, end: 20100223
  2. ANTIBIOPHILUS [Concomitant]
     Indication: DIARRHOEA
     Dosage: 2 DF, 3X/DAY
     Route: 048
     Dates: start: 20100221, end: 20100224
  3. CEFAZOLIN [Concomitant]
     Indication: SEPSIS
     Dosage: 2 MG, 3X/DAY
     Route: 048
     Dates: start: 20100221, end: 20100224
  4. LASIX [Concomitant]
     Indication: OLIGURIA
     Dosage: 40 MG, 1X/DAY
     Route: 042
     Dates: start: 20100221, end: 20100221
  5. PANTOPRAZOLE [Concomitant]
     Indication: PROPHYLAXIS AGAINST GASTROINTESTINAL ULCER
     Dosage: 40 MG, 1X/DAY
     Route: 048
     Dates: start: 20100217, end: 20100223
  6. DIPYRONE TAB [Concomitant]
     Indication: PAIN
     Dosage: 30 DROPS, 4X/DAY
     Route: 048
     Dates: start: 20100218, end: 20100221
  7. DIPIDOLOR [Concomitant]
     Indication: PAIN
     Dosage: 1 AMPOULE X 22H (1 IN 22 HR)
     Route: 048
     Dates: start: 20100222, end: 20100222
  8. PASPERTIN [Concomitant]
     Indication: NAUSEA
     Dosage: 20 DROPS, 3X/DAY
     Route: 048
     Dates: start: 20100220, end: 20100222

REACTIONS (8)
  - CARDIAC ARREST [None]
  - CARDIOVASCULAR DISORDER [None]
  - CEREBRAL HAEMORRHAGE [None]
  - COMPUTERISED TOMOGRAM ABNORMAL [None]
  - CONDITION AGGRAVATED [None]
  - DIALYSIS [None]
  - DRUG ADMINISTRATION ERROR [None]
  - OLIGURIA [None]
